FAERS Safety Report 8559818-6 (Version None)
Quarter: 2012Q3

REPORT INFORMATION
  Report Type: 
  Country: None (occurrence: None)
  Receive Date: 20120802
  Receipt Date: 20120731
  Transmission Date: 20120928
  Serious: No
  Sender: FDA-Public Use
  Company Number: US-PFIZER INC-2012186787

PATIENT
  Sex: Female

DRUGS (2)
  1. XANAX [Suspect]
     Indication: ANXIETY
     Dosage: HALF OF 1MG TABLET AT BED TIME DAILY
     Route: 048
     Dates: start: 20081201
  2. CELEXA [Concomitant]
     Indication: DEPRESSION
     Dosage: 20 MG, DAILY
     Dates: end: 20110101

REACTIONS (2)
  - PRODUCT QUALITY ISSUE [None]
  - DRUG INEFFECTIVE [None]
